FAERS Safety Report 20177514 (Version 3)
Quarter: 2022Q2

REPORT INFORMATION
  Report Type: Spontaneous
  Country: CA (occurrence: CA)
  Receive Date: 20211213
  Receipt Date: 20220614
  Transmission Date: 20220721
  Serious: Yes (Other)
  Sender: FDA-Public Use
  Company Number: CA-PFIZER INC-202101029345

PATIENT
  Age: 65 Year
  Sex: Female

DRUGS (12)
  1. IBRANCE [Suspect]
     Active Substance: PALBOCICLIB
     Indication: Breast cancer metastatic
     Dosage: 125 MG, DAILY FOR 21 DAYS THEN STOP 7 DAYS THEN REPEAT CYCLE
     Dates: start: 20210520
  2. IBRANCE [Suspect]
     Active Substance: PALBOCICLIB
     Dosage: 125 MG, DAILY FOR 21 DAYS THEN STOP 7 DAYS THEN REPEAT CYCLE
     Dates: start: 20210528
  3. IBRANCE [Suspect]
     Active Substance: PALBOCICLIB
     Dosage: 100 MG, DAILY (EVERY 28 DAY CYCLE)
     Route: 048
     Dates: start: 20210825
  4. IBRANCE [Suspect]
     Active Substance: PALBOCICLIB
     Dosage: 75 MG  DAILY FOR 21 DAYS, STOP FOR 7 DAYS THEN REPEAT CYCLE
     Route: 048
  5. IBRANCE [Suspect]
     Active Substance: PALBOCICLIB
     Dosage: 75 MG
  6. CARVEDILOL [Concomitant]
     Active Substance: CARVEDILOL
     Dosage: 12.5 MG, 2X/DAY
  7. ENTRESTO [Concomitant]
     Active Substance: SACUBITRIL\VALSARTAN
     Dosage: 49/51, ONE TABLET , TWICE DAILY
  8. LETROZOLE [Concomitant]
     Active Substance: LETROZOLE
     Dosage: 2.5 MG, DAILY
  9. PRAVASTATIN [Concomitant]
     Active Substance: PRAVASTATIN
     Dosage: 20 MG, DAILY
  10. RANITIDINE [Concomitant]
     Active Substance: RANITIDINE
     Dosage: 150 MG, 2X/DAY
  11. SYNTHROID [Concomitant]
     Active Substance: LEVOTHYROXINE SODIUM
     Dosage: 0.1 MG, DAILY
  12. XARELTO [Concomitant]
     Active Substance: RIVAROXABAN
     Dosage: 15 MG, DAILY

REACTIONS (2)
  - Haemoglobin decreased [Unknown]
  - Full blood count abnormal [Unknown]
